FAERS Safety Report 6556462-7 (Version None)
Quarter: 2010Q1

REPORT INFORMATION
  Report Type: 
  Country: None (occurrence: None)
  Receive Date: 20100125
  Receipt Date: 20100111
  Transmission Date: 20100710
  Serious: Yes (Life-Threatening, Hospitalization, Disabling, Other)
  Sender: FDA-Public Use
  Company Number: 472601

PATIENT
  Age: 59 Year
  Sex: Male
  Weight: 90.7194 kg

DRUGS (5)
  1. METHOTREXATE [Suspect]
     Indication: DRUG USE FOR UNKNOWN INDICATION
     Dosage: 20 MG; ONE EVERY WEEK, SUBCUTANEOUS
     Route: 058
  2. ENBREL [Suspect]
     Indication: DRUG USE FOR UNKNOWN INDICATION
     Dosage: 50 MG; ONE EVERY WEEK, SUBCUTANEOUS
     Route: 058
  3. ADVAIR DISKUS 100/50 [Concomitant]
  4. CRESTOR [Concomitant]
  5. VENTOLIN [Concomitant]

REACTIONS (6)
  - BACTERAEMIA [None]
  - CEREBRAL ARTERY EMBOLISM [None]
  - CEREBROVASCULAR ACCIDENT [None]
  - ENDOCARDITIS BACTERIAL [None]
  - MITRAL VALVE DISEASE [None]
  - STAPHYLOCOCCAL INFECTION [None]
